FAERS Safety Report 5304327-0 (Version None)
Quarter: 2007Q2

REPORT INFORMATION
  Report Type: 
  Country: None (occurrence: None)
  Receive Date: 20070423
  Receipt Date: 20070418
  Transmission Date: 20071010
  Serious: Yes (Life-Threatening)
  Sender: FDA-Public Use
  Company Number: JP-BAYER-200611167BYL

PATIENT
  Age: 83 Year
  Sex: Male

DRUGS (3)
  1. CIPROXAN-I.V. [Suspect]
     Indication: PNEUMONIA
     Route: 042
     Dates: start: 20060911, end: 20060921
  2. TIENAM [Concomitant]
     Indication: PNEUMONIA
     Route: 065
     Dates: start: 20060831
  3. AMIKACIN [Concomitant]
     Route: 065
     Dates: start: 20060901, end: 20060909

REACTIONS (1)
  - TOXIC EPIDERMAL NECROLYSIS [None]
